FAERS Safety Report 13741437 (Version 1)
Quarter: 2017Q3

REPORT INFORMATION
  Report Type: Spontaneous
  Country: US (occurrence: US)
  Receive Date: 20170711
  Receipt Date: 20170711
  Transmission Date: 20171127
  Serious: Yes (Other)
  Sender: FDA-Public Use
  Company Number: US-ZYDUS-015710

PATIENT
  Age: 51 Year
  Sex: Male

DRUGS (1)
  1. LEVOFLOXACIN. [Suspect]
     Active Substance: LEVOFLOXACIN
     Indication: PRODUCT USED FOR UNKNOWN INDICATION
     Route: 065

REACTIONS (8)
  - Nervous system disorder [Unknown]
  - Dysmetria [Unknown]
  - Cognitive disorder [Unknown]
  - Disturbance in attention [Unknown]
  - Time perception altered [Unknown]
  - Romberg test positive [Unknown]
  - Neurological examination abnormal [Unknown]
  - Impaired work ability [Unknown]
